FAERS Safety Report 11770276 (Version 2)
Quarter: 2015Q4

REPORT INFORMATION
  Report Type: Spontaneous
  Country: SE (occurrence: SE)
  Receive Date: 20151123
  Receipt Date: 20151124
  Transmission Date: 20160304
  Serious: Yes (Other)
  Sender: FDA-Public Use
  Company Number: SE-JNJFOC-20151106750

PATIENT
  Age: 41 Year
  Sex: Male

DRUGS (6)
  1. CONCERTA [Suspect]
     Active Substance: METHYLPHENIDATE HYDROCHLORIDE
     Indication: ATTENTION DEFICIT/HYPERACTIVITY DISORDER
     Route: 048
  2. RITALIN [Suspect]
     Active Substance: METHYLPHENIDATE HYDROCHLORIDE
     Indication: PRODUCT USED FOR UNKNOWN INDICATION
     Route: 065
  3. RITALIN [Suspect]
     Active Substance: METHYLPHENIDATE HYDROCHLORIDE
     Indication: PRODUCT USED FOR UNKNOWN INDICATION
     Route: 065
  4. CONCERTA [Suspect]
     Active Substance: METHYLPHENIDATE HYDROCHLORIDE
     Indication: ATTENTION DEFICIT/HYPERACTIVITY DISORDER
     Route: 048
  5. CONCERTA [Suspect]
     Active Substance: METHYLPHENIDATE HYDROCHLORIDE
     Indication: ATTENTION DEFICIT/HYPERACTIVITY DISORDER
     Route: 048
  6. CONCERTA [Suspect]
     Active Substance: METHYLPHENIDATE HYDROCHLORIDE
     Indication: ATTENTION DEFICIT/HYPERACTIVITY DISORDER
     Route: 048

REACTIONS (25)
  - Ocular hyperaemia [Unknown]
  - Anxiety [Unknown]
  - Dysgeusia [Unknown]
  - Eye movement disorder [Unknown]
  - Inappropriate schedule of drug administration [Unknown]
  - Arthritis [Unknown]
  - Drug withdrawal syndrome [Unknown]
  - Eye pain [Unknown]
  - Vision blurred [Unknown]
  - Arthralgia [Unknown]
  - Lacrimation increased [Unknown]
  - Inflammation [Unknown]
  - Suicide attempt [Unknown]
  - Depression [Unknown]
  - Mood swings [Unknown]
  - Sleep disorder [Unknown]
  - Rhinorrhoea [Unknown]
  - Therapeutic response decreased [Unknown]
  - Malaise [Unknown]
  - Eye inflammation [Unknown]
  - Therapeutic response delayed [Unknown]
  - Muscle spasms [Unknown]
  - Suicidal ideation [Unknown]
  - Asthenia [Unknown]
  - Sensory disturbance [Unknown]
